FAERS Safety Report 10878715 (Version 2)
Quarter: 2015Q4

REPORT INFORMATION
  Report Type: Report from Study
  Country: US (occurrence: US)
  Receive Date: 20150302
  Receipt Date: 20151118
  Transmission Date: 20160304
  Serious: Yes (Hospitalization, Other)
  Sender: FDA-Public Use
  Company Number: US-SA-2015SA015011

PATIENT
  Age: 42 Year
  Sex: Male

DRUGS (3)
  1. AUBAGIO [Suspect]
     Active Substance: TERIFLUNOMIDE
     Indication: MULTIPLE SCLEROSIS
     Route: 048
     Dates: start: 20140304, end: 20150203
  2. TYSABRI [Concomitant]
     Active Substance: NATALIZUMAB
  3. TECFIDERA [Concomitant]
     Active Substance: DIMETHYL FUMARATE

REACTIONS (8)
  - Immune thrombocytopenic purpura [Recovered/Resolved]
  - Herpes zoster [Unknown]
  - JC virus test positive [Unknown]
  - Multiple sclerosis relapse [Recovered/Resolved]
  - Mobility decreased [Unknown]
  - Nuclear magnetic resonance imaging abnormal [Recovered/Resolved]
  - Multiple sclerosis [Unknown]
  - Asthenia [Unknown]

NARRATIVE: CASE EVENT DATE: 201408
